FAERS Safety Report 19632981 (Version 2)
Quarter: 2021Q4

REPORT INFORMATION
  Report Type: Spontaneous
  Country: CZ (occurrence: CZ)
  Receive Date: 20210730
  Receipt Date: 20211008
  Transmission Date: 20220303
  Serious: Yes (Hospitalization, Other)
  Sender: FDA-Public Use
  Company Number: CZ-TEVA-2021-CZ-1931974

PATIENT
  Age: 63 Year
  Sex: Male

DRUGS (3)
  1. ROSUVASTATIN [Suspect]
     Active Substance: ROSUVASTATIN
     Indication: Product used for unknown indication
     Dosage: 10 MILLIGRAM(ROSUVASTATIN 10 MG )
     Route: 065
  2. FENOFIBRATE [Concomitant]
     Active Substance: FENOFIBRATE
     Indication: Product used for unknown indication
     Dosage: UNK
     Route: 065
  3. ALLOPURINOL [Concomitant]
     Active Substance: ALLOPURINOL
     Indication: Product used for unknown indication
     Dosage: UNK
     Route: 065

REACTIONS (4)
  - Dyspnoea [Recovered/Resolved]
  - Cough [Recovered/Resolved]
  - Pulmonary toxicity [Recovering/Resolving]
  - Haemoptysis [Recovered/Resolved]

NARRATIVE: CASE EVENT DATE: 20200101
